FAERS Safety Report 6948665 (Version 1)
Quarter: 2020Q3

REPORT INFORMATION
  Report Type: Report from Study
  Country: US (occurrence: US)
  Receive Date: 20090323
  Receipt Date: 20090323
  Transmission Date: 20201104
  Serious: Yes (Other)
  Sender: FDA-Public Use
  Company Number: US-ROCHE-621471

PATIENT
  Age: 58 Year
  Sex: Female

DRUGS (1)
  1. IBANDRONIC ACID. [Suspect]
     Active Substance: IBANDRONIC ACID
     Indication: OSTEOPOROSIS
     Route: 065
     Dates: start: 200512

REACTIONS (2)
  - Arachnoiditis [Unknown]
  - Dysphagia [Recovering/Resolving]

NARRATIVE: CASE EVENT DATE: 20081201
